FAERS Safety Report 14780993 (Version 1)
Quarter: 2018Q2

REPORT INFORMATION
  Report Type: Report from Study
  Country: EG (occurrence: EG)
  Receive Date: 20180419
  Receipt Date: 20180419
  Transmission Date: 20180711
  Serious: Yes (Disabling)
  Sender: FDA-Public Use
  Company Number: PHHY2018EG067018

PATIENT
  Age: 48 Year
  Sex: Female

DRUGS (3)
  1. AFINITOR [Suspect]
     Active Substance: EVEROLIMUS
     Indication: HEPATIC CANCER METASTATIC
     Dosage: 5 OT, BID
     Route: 048
     Dates: start: 20180315, end: 20180410
  2. AFINITOR [Suspect]
     Active Substance: EVEROLIMUS
     Indication: LYMPHOMA
  3. AFINITOR [Suspect]
     Active Substance: EVEROLIMUS
     Indication: BONE CANCER

REACTIONS (5)
  - Hepatic enzyme increased [Not Recovered/Not Resolved]
  - Product use in unapproved indication [Unknown]
  - Vomiting [Not Recovered/Not Resolved]
  - Blood bilirubin increased [Not Recovered/Not Resolved]
  - Concomitant disease aggravated [Not Recovered/Not Resolved]

NARRATIVE: CASE EVENT DATE: 20180315
